FAERS Safety Report 9670043 (Version 1)
Quarter: 2013Q4

REPORT INFORMATION
  Report Type: Spontaneous
  Country: US (occurrence: None)
  Receive Date: 20131104
  Receipt Date: 20131104
  Transmission Date: 20140711
  Serious: Yes (Death)
  Sender: FDA-Public Use
  Company Number: 1954850

PATIENT
  Age: 75 Year
  Sex: Female
  Weight: 61 kg

DRUGS (5)
  1. HEPARIN SODIUM INJECTION [Suspect]
     Indication: THROMBOSIS PROPHYLAXIS
     Dates: start: 20130927, end: 20131004
  2. CRESTOR [Concomitant]
  3. TRAZODONE [Concomitant]
  4. ALBUTEROL [Concomitant]
  5. ROCEPHIN [Concomitant]

REACTIONS (3)
  - Extradural haematoma [None]
  - Paresis [None]
  - Spinal epidural haemorrhage [None]
